FAERS Safety Report 13386048 (Version 1)
Quarter: 2017Q1

REPORT INFORMATION
  Report Type: Spontaneous
  Country: US (occurrence: US)
  Receive Date: 20170330
  Receipt Date: 20170330
  Transmission Date: 20170429
  Serious: No
  Sender: FDA-Public Use
  Company Number: US-ASTRAZENECA-2017SE30626

PATIENT
  Age: 923 Month
  Sex: Female
  Weight: 83.9 kg

DRUGS (17)
  1. CRESTOR [Suspect]
     Active Substance: ROSUVASTATIN CALCIUM
     Indication: BLOOD CHOLESTEROL ABNORMAL
     Route: 048
  2. METFORMIN [Concomitant]
     Active Substance: METFORMIN HYDROCHLORIDE
     Indication: DIABETES MELLITUS
     Route: 048
  3. DICLOFENAC SODIUM. [Concomitant]
     Active Substance: DICLOFENAC SODIUM
     Dosage: 75MG SLASH 200 MICROGRAMS TWICE A DAY
  4. HYDROCODONE BITARTRATE AND ACETAMINOPHEN [Concomitant]
     Active Substance: ACETAMINOPHEN\HYDROCODONE BITARTRATE
     Dosage: 5/325MG ONCE DAILY
  5. COLECALCIFEROL [Concomitant]
     Active Substance: CHOLECALCIFEROL
     Indication: OSTEOPOROSIS
     Dosage: 500IU WITH CITRACAL ELEMENTAL 400MG
  6. METAMUCIL [Concomitant]
     Active Substance: PLANTAGO SEED
  7. MOVANTIK [Suspect]
     Active Substance: NALOXEGOL OXALATE
     Indication: CONSTIPATION
     Route: 048
     Dates: start: 20170313, end: 20170317
  8. NEXIUM [Suspect]
     Active Substance: ESOMEPRAZOLE MAGNESIUM
     Indication: GASTROOESOPHAGEAL REFLUX DISEASE
     Route: 048
  9. LISINOPRIL. [Suspect]
     Active Substance: LISINOPRIL
     Indication: BLOOD PRESSURE ABNORMAL
     Route: 048
  10. NEXIUM [Suspect]
     Active Substance: ESOMEPRAZOLE MAGNESIUM
     Indication: GASTROOESOPHAGEAL REFLUX DISEASE
     Route: 048
  11. CILOSTAZOL. [Concomitant]
     Active Substance: CILOSTAZOL
     Indication: BLOOD CHOLESTEROL ABNORMAL
     Route: 048
  12. XANAX [Concomitant]
     Active Substance: ALPRAZOLAM
     Indication: NERVOUS SYSTEM DISORDER
     Route: 048
  13. VITAMIN D [Concomitant]
     Active Substance: CHOLECALCIFEROL
     Dosage: 2000 ID ONCE A DAY
     Route: 048
  14. DULCOLAX NOS [Concomitant]
     Active Substance: BISACODYL OR DOCUSATE SODIUM
  15. BABY ASPIRIN [Concomitant]
     Active Substance: ASPIRIN
     Indication: CARDIAC DISORDER
     Route: 048
  16. VITAMIN C [Concomitant]
     Active Substance: ASCORBIC ACID
     Route: 048
  17. WOMEN MULTIVITAMIN [Concomitant]
     Dosage: DAILY
     Route: 048

REACTIONS (11)
  - Body height decreased [Not Recovered/Not Resolved]
  - Intentional product misuse [Recovered/Resolved]
  - Osteoporosis [Unknown]
  - Constipation [Recovered/Resolved]
  - Arthritis [Unknown]
  - Drug ineffective [Recovered/Resolved]
  - Visual acuity reduced [Not Recovered/Not Resolved]
  - Blood cholesterol increased [Unknown]
  - Diabetes mellitus [Not Recovered/Not Resolved]
  - Nerve injury [Unknown]
  - Nausea [Recovering/Resolving]

NARRATIVE: CASE EVENT DATE: 201701
